FAERS Safety Report 12855790 (Version 1)
Quarter: 2016Q4

REPORT INFORMATION
  Report Type: Spontaneous
  Country: US (occurrence: US)
  Receive Date: 20161018
  Receipt Date: 20161018
  Transmission Date: 20170207
  Serious: No
  Sender: FDA-Public Use
  Company Number: US-B.I. PHARMACEUTICALS,INC./RIDGEFIELD-2016-BI-063803

PATIENT
  Sex: Female

DRUGS (1)
  1. ATROVENT [Suspect]
     Active Substance: IPRATROPIUM BROMIDE
     Indication: PRODUCT USED FOR UNKNOWN INDICATION
     Dosage: UNKNOWN;  FORM STRENGTH: 17 MCG; FORMULATION: HFA INHALATION AEROSOL? ADMINISTRATION CORRECT? NR(NOT
     Route: 055

REACTIONS (4)
  - Joint swelling [Unknown]
  - Asthma [Unknown]
  - Arthralgia [Unknown]
  - Cartilage injury [Unknown]
